FAERS Safety Report 4947641-0 (Version None)
Quarter: 2006Q1

REPORT INFORMATION
  Report Type: 
  Country: None (occurrence: None)
  Receive Date: 20060320
  Receipt Date: 20060313
  Transmission Date: 20060701
  Serious: Yes (Other)
  Sender: FDA-Public Use
  Company Number: DE-JNJFOC-20060101265

PATIENT
  Sex: Male

DRUGS (4)
  1. RISPERDAL [Suspect]
     Indication: DRUG USE FOR UNKNOWN INDICATION
     Route: 048
  2. SOLIAN [Suspect]
     Route: 048
  3. OTHER UNSPECIFIED ANTIPSYCHOTICS [Concomitant]
  4. TRUXAL [Concomitant]
     Indication: DRUG USE FOR UNKNOWN INDICATION
     Route: 065

REACTIONS (3)
  - ACNE [None]
  - RETINAL PIGMENTATION [None]
  - SICK SINUS SYNDROME [None]
